FAERS Safety Report 17533450 (Version 1)
Quarter: 2020Q1

REPORT INFORMATION
  Report Type: Spontaneous
  Country: DE (occurrence: DE)
  Receive Date: 20200312
  Receipt Date: 20200312
  Transmission Date: 20200409
  Serious: Yes (Other)
  Sender: FDA-Public Use
  Company Number: DE-PFIZER INC-2020104012

PATIENT
  Age: 26 Year
  Sex: Female
  Weight: 89 kg

DRUGS (2)
  1. CYTOTEC [Suspect]
     Active Substance: MISOPROSTOL
     Indication: LABOUR INDUCTION
  2. CYTOTEC [Suspect]
     Active Substance: MISOPROSTOL
     Indication: TYPE 1 DIABETES MELLITUS
     Dosage: 200 UG, DAILY (50 MICROGRAMS FOUR TIMES A DAY)
     Route: 048
     Dates: start: 20190810, end: 20190812

REACTIONS (6)
  - Uterine tachysystole [Unknown]
  - Uterine injury [Unknown]
  - Product use in unapproved indication [Unknown]
  - Off label use [Unknown]
  - Amniorrhexis [Unknown]
  - Threatened uterine rupture [Unknown]

NARRATIVE: CASE EVENT DATE: 20190811
